FAERS Safety Report 11031136 (Version 1)
Quarter: 2015Q2

REPORT INFORMATION
  Report Type: Spontaneous
  Country: US (occurrence: US)
  Receive Date: 20150415
  Receipt Date: 20150415
  Transmission Date: 20150821
  Serious: No
  Sender: FDA-Public Use
  Company Number: US-ASTRAZENECA-2014SE24102

PATIENT
  Sex: Female

DRUGS (1)
  1. PRILOSEC OTC [Suspect]
     Active Substance: OMEPRAZOLE MAGNESIUM
     Route: 048
     Dates: start: 20140316, end: 20140320

REACTIONS (4)
  - Chest discomfort [Unknown]
  - Feeling abnormal [Unknown]
  - Vulvovaginal burning sensation [Unknown]
  - Vulvovaginal pain [Unknown]
